FAERS Safety Report 6435453-0 (Version None)
Quarter: 2009Q4

REPORT INFORMATION
  Report Type: 
  Country: None (occurrence: None)
  Receive Date: 20091106
  Receipt Date: 20091106
  Transmission Date: 20100525
  Serious: Yes (Life-Threatening, Hospitalization)
  Sender: FDA-Public Use
  Company Number: 2009SP022826

PATIENT
  Age: 67 Year
  Sex: Female
  Weight: 44 kg

DRUGS (3)
  1. PEG-INTRON [Suspect]
     Indication: HEPATITIS C
     Dosage: 80 MCG, QW; SC
     Route: 058
     Dates: start: 20081127, end: 20090521
  2. REBETOL [Suspect]
     Indication: HEPATITIS C
     Dosage: 600 MG QD; PO
     Route: 048
     Dates: start: 20081127, end: 20090521
  3. MEDIPEACE [Concomitant]

REACTIONS (5)
  - ANAEMIA HAEMOLYTIC AUTOIMMUNE [None]
  - ANAEMIA MEGALOBLASTIC [None]
  - ANAEMIA VITAMIN B12 DEFICIENCY [None]
  - PALPITATIONS [None]
  - PANCYTOPENIA [None]
